FAERS Safety Report 4629261-0 (Version None)
Quarter: 2005Q2

REPORT INFORMATION
  Report Type: 
  Country: None (occurrence: None)
  Receive Date: 20050404
  Receipt Date: 20050404
  Transmission Date: 20051028
  Serious: No
  Sender: FDA-Public Use
  Company Number: None

PATIENT
  Sex: Female
  Weight: 83.4619 kg

DRUGS (2)
  1. PROPOXYPHENE HCL [Suspect]
     Indication: OSTEOARTHRITIS
     Dosage: P.O
     Route: 048
  2. PROPOXYPHENE HCL [Suspect]
     Indication: POLYMYALGIA
     Dosage: P.O
     Route: 048

REACTIONS (2)
  - DRUG INEFFECTIVE [None]
  - RASH [None]
